FAERS Safety Report 7563123-4 (Version None)
Quarter: 2011Q2

REPORT INFORMATION
  Report Type: 
  Country: None (occurrence: None)
  Receive Date: 20110615
  Receipt Date: 20110607
  Transmission Date: 20111010
  Serious: Yes (Other)
  Sender: FDA-Public Use
  Company Number: US-005517

PATIENT
  Sex: Female
  Weight: 90.7194 kg

DRUGS (4)
  1. SYNTHROID [Concomitant]
  2. TRANEXAMIC ACID [Suspect]
     Indication: PRODUCT USED FOR UNKNOWN INDICATION
     Dosage: (2 TABLETS THREE TIMES A DAY (TID))
     Dates: start: 20110401, end: 20110501
  3. ELAVIL [Concomitant]
  4. ZOLOFT [Concomitant]

REACTIONS (2)
  - RETINAL OEDEMA [None]
  - HEADACHE [None]
